FAERS Safety Report 12940538 (Version 2)
Quarter: 2016Q4

REPORT INFORMATION
  Report Type: Report from Study
  Country: IE (occurrence: IE)
  Receive Date: 20161115
  Receipt Date: 20161226
  Transmission Date: 20170207
  Serious: Yes (Other)
  Sender: FDA-Public Use
  Company Number: PHFR2016IE008921

PATIENT
  Age: 71 Year
  Sex: Male

DRUGS (19)
  1. PLAVIX [Concomitant]
     Active Substance: CLOPIDOGREL BISULFATE
     Indication: BLOOD CHOLESTEROL INCREASED
     Dosage: 75 MG, QD
     Route: 048
  2. MULTAQ [Concomitant]
     Active Substance: DRONEDARONE
     Indication: ARRHYTHMIA
     Dosage: 400 MG, BID
     Route: 048
     Dates: start: 20110405
  3. DERMOVATE [Concomitant]
     Active Substance: CLOBETASOL
     Indication: DRY SKIN
     Dosage: 0.05 %, BID
     Route: 061
  4. NEXAZOL [Concomitant]
     Indication: GASTROINTESTINAL DISORDER
     Dosage: 40 MG, NOCTE (AT NIGHT)
     Route: 048
  5. MAXOLON [Concomitant]
     Active Substance: METOCLOPRAMIDE HYDROCHLORIDE
     Indication: GASTROINTESTINAL DISORDER
     Dosage: 10 MG, BID
     Route: 048
     Dates: start: 20110603
  6. NEO-CYTAMEN [Concomitant]
     Indication: VITAMIN B12 DEFICIENCY
     Route: 065
  7. PRAVAT [Concomitant]
     Indication: BLOOD CHOLESTEROL INCREASED
     Dosage: 10 MG, QD
     Route: 048
     Dates: start: 20131211
  8. DIAMICRON [Concomitant]
     Active Substance: GLICLAZIDE
     Indication: PRODUCT USED FOR UNKNOWN INDICATION
     Dosage: 60 MG, QD
     Route: 048
  9. BUTRANS [Concomitant]
     Active Substance: BUPRENORPHINE
     Indication: PRODUCT USED FOR UNKNOWN INDICATION
     Dosage: 10 UG, UNK
     Route: 065
  10. ULTIBRO BREEZHALER [Suspect]
     Active Substance: GLYCOPYRRONIUM\INDACATEROL
     Indication: CHRONIC OBSTRUCTIVE PULMONARY DISEASE
     Dosage: UNK
     Route: 055
     Dates: start: 20150616
  11. APO-FOLIC ACID [Concomitant]
     Active Substance: FOLIC ACID
     Indication: SUPPLEMENTATION THERAPY
     Dosage: 5 MG, QD
     Route: 048
     Dates: start: 20050718
  12. LYRICA [Concomitant]
     Active Substance: PREGABALIN
     Indication: PRODUCT USED FOR UNKNOWN INDICATION
     Dosage: 400 MG, QD
     Route: 048
     Dates: start: 20081229
  13. JENTADUETO [Concomitant]
     Active Substance: LINAGLIPTIN\METFORMIN HYDROCHLORIDE
     Indication: DIABETES MELLITUS
     Dosage: 2.5 MG +1 GRAM , BID
     Dates: start: 20160928
  14. NEBIVOLOL. [Concomitant]
     Active Substance: NEBIVOLOL
     Indication: CARDIAC DISORDER
     Dosage: 5 MG, QD
     Route: 048
     Dates: start: 20080814
  15. DALMANE [Concomitant]
     Active Substance: FLURAZEPAM HYDROCHLORIDE
     Indication: INSOMNIA
     Dosage: 30 MG, QHS
     Route: 048
  16. PRAXILENE [Concomitant]
     Active Substance: NAFRONYL
     Indication: PERIPHERAL VASCULAR DISORDER
     Dosage: 100 MG, TID
     Route: 048
     Dates: start: 20150615
  17. MOBIC [Concomitant]
     Active Substance: MELOXICAM
     Indication: PRODUCT USED FOR UNKNOWN INDICATION
     Dosage: 15 MG, QD
     Route: 048
     Dates: start: 20101125
  18. FLIXOTIDE [Concomitant]
     Active Substance: FLUTICASONE PROPIONATE
     Indication: RESPIRATORY DISORDER
     Dosage: 500 UG, BID
     Route: 055
     Dates: start: 20150721
  19. ASPIRIN. [Concomitant]
     Active Substance: ASPIRIN
     Indication: CARDIAC DISORDER
     Dosage: 40 MG, QD
     Route: 048

REACTIONS (9)
  - Back injury [Unknown]
  - Cough [Recovered/Resolved]
  - Respiratory tract infection [Recovered/Resolved]
  - Fall [Unknown]
  - Limb injury [Unknown]
  - Groin pain [Recovered/Resolved]
  - Gait disturbance [Recovered/Resolved]
  - Asthenia [Unknown]
  - Contusion [Unknown]

NARRATIVE: CASE EVENT DATE: 20151201
